FAERS Safety Report 4290744-7 (Version None)
Quarter: 2004Q1

REPORT INFORMATION
  Report Type: 
  Country: None (occurrence: None)
  Receive Date: 20040211
  Receipt Date: 20031006
  Transmission Date: 20041129
  Serious: No
  Sender: FDA-Public Use
  Company Number: US-GLAXOSMITHKLINE-A0428979A

PATIENT
  Age: 79 Year
  Sex: Male

DRUGS (3)
  1. PAXIL [Suspect]
     Dosage: 20MG PER DAY
     Route: 048
  2. ALLEGRA [Concomitant]
  3. PROSCAR [Concomitant]

REACTIONS (6)
  - ABDOMINAL DISTENSION [None]
  - BALANCE DISORDER [None]
  - BURNING SENSATION [None]
  - EYE IRRITATION [None]
  - FLATULENCE [None]
  - SOMNOLENCE [None]
